FAERS Safety Report 16644704 (Version 1)
Quarter: 2019Q3

REPORT INFORMATION
  Report Type: Spontaneous
  Country: US (occurrence: US)
  Receive Date: 20190729
  Receipt Date: 20190729
  Transmission Date: 20191004
  Serious: No
  Sender: FDA-Public Use
  Company Number: US-SA-2019SA199376

PATIENT
  Age: 26 Year
  Sex: Male

DRUGS (5)
  1. PROAIR HFA [Concomitant]
     Active Substance: ALBUTEROL SULFATE
  2. CYCLOSPORINE. [Concomitant]
     Active Substance: CYCLOSPORINE
  3. LORATADINE. [Concomitant]
     Active Substance: LORATADINE
  4. TRIAMCINOLONE [Concomitant]
     Active Substance: TRIAMCINOLONE
  5. DUPIXENT [Suspect]
     Active Substance: DUPILUMAB
     Indication: DERMATITIS ALLERGIC
     Dosage: 300 MG, 1X
     Route: 058
     Dates: start: 20190719, end: 20190719

REACTIONS (2)
  - Incorrect dose administered [Not Recovered/Not Resolved]
  - Needle issue [Not Recovered/Not Resolved]

NARRATIVE: CASE EVENT DATE: 20190719
